FAERS Safety Report 16263180 (Version 2)
Quarter: 2019Q2

REPORT INFORMATION
  Report Type: Spontaneous
  Country: US (occurrence: US)
  Receive Date: 20190502
  Receipt Date: 20190523
  Transmission Date: 20190711
  Serious: No
  Sender: FDA-Public Use
  Company Number: US-BEH-2019101660

PATIENT
  Sex: Female

DRUGS (2)
  1. HIZENTRA [Suspect]
     Active Substance: HUMAN IMMUNOGLOBULIN G
     Indication: IMMUNODEFICIENCY
     Dosage: 6 G, QW
     Route: 058
     Dates: start: 20181219
  2. HIZENTRA [Suspect]
     Active Substance: HUMAN IMMUNOGLOBULIN G
     Dosage: 6 G, QW
     Route: 058
     Dates: start: 20181114

REACTIONS (5)
  - Infusion site pain [Unknown]
  - Alopecia [Unknown]
  - Madarosis [Unknown]
  - Trichorrhexis [Unknown]
  - Infusion site swelling [Unknown]
